FAERS Safety Report 15599086 (Version 8)
Quarter: 2020Q1

REPORT INFORMATION
  Report Type: Spontaneous
  Country: US (occurrence: US)
  Receive Date: 20181108
  Receipt Date: 20200318
  Transmission Date: 20200409
  Serious: Yes (Other)
  Sender: FDA-Public Use
  Company Number: US-PFIZER INC-2018424644

PATIENT
  Age: 68 Year
  Sex: Male

DRUGS (3)
  1. DETROL LA [Suspect]
     Active Substance: TOLTERODINE TARTRATE
     Indication: BENIGN PROSTATIC HYPERPLASIA
     Dosage: 4 MG, 1X/DAY
     Route: 048
  2. FINASTERIDE. [Suspect]
     Active Substance: FINASTERIDE
     Dosage: UNK, DAILY
  3. DETROL LA [Suspect]
     Active Substance: TOLTERODINE TARTRATE
     Indication: PROSTATIC DISORDER
     Dosage: 4 MG, ALTERNATE DAY
     Route: 048

REACTIONS (8)
  - Emotional disorder [Unknown]
  - Product use in unapproved indication [Unknown]
  - Depression [Unknown]
  - Intentional product use issue [Unknown]
  - Prostate cancer [Unknown]
  - Off label use [Unknown]
  - Stress [Unknown]
  - Anxiety [Unknown]
